FAERS Safety Report 12808540 (Version 2)
Quarter: 2016Q4

REPORT INFORMATION
  Report Type: Report from Study
  Country: None (occurrence: AR)
  Receive Date: 20161004
  Receipt Date: 20161107
  Transmission Date: 20170207
  Serious: Yes (Other)
  Sender: FDA-Public Use
  Company Number: AR-ABBVIE-16K-007-1743077-00

PATIENT
  Sex: Female

DRUGS (1)
  1. HUMIRA [Suspect]
     Active Substance: ADALIMUMAB
     Indication: PSORIATIC ARTHROPATHY
     Route: 058
     Dates: start: 20100405

REACTIONS (8)
  - Nasal oedema [Unknown]
  - Accident at work [Unknown]
  - Sinusitis [Recovered/Resolved]
  - Laryngeal pain [Recovered/Resolved]
  - Nausea [Unknown]
  - Conjunctivitis [Recovered/Resolved]
  - Dizziness [Unknown]
  - Vertigo [Unknown]

NARRATIVE: CASE EVENT DATE: 2016
